FAERS Safety Report 10447885 (Version 1)
Quarter: 2014Q3

REPORT INFORMATION
  Report Type: Report from Study
  Country: US (occurrence: US)
  Receive Date: 20140911
  Receipt Date: 20140911
  Transmission Date: 20150326
  Serious: Yes (Hospitalization)
  Sender: FDA-Public Use
  Company Number: PHHY2013US159254

PATIENT
  Age: 47 Year
  Sex: Female

DRUGS (15)
  1. DUONEB [Concomitant]
     Active Substance: ALBUTEROL SULFATE\IPRATROPIUM BROMIDE
     Dosage: UNK UKN, UNK
  2. IPRATROPIUM BROMIDE W/SALBUTAMOL SULFATE [Concomitant]
     Dosage: UNK UKN, UNK (1 IN 6 HOUR)
  3. PULMICORT TURBUHALER [Concomitant]
     Active Substance: BUDESONIDE
     Dosage: UNK UKN, UNK (0.5 MG/2 ML)
     Route: 055
  4. PROTONIX [Concomitant]
     Active Substance: PANTOPRAZOLE SODIUM
     Dosage: 40 MG, BID
  5. SPIRIVA [Concomitant]
     Active Substance: TIOTROPIUM BROMIDE MONOHYDRATE
     Dosage: 18 UG, QD
     Route: 055
  6. CITALOPRAM [Concomitant]
     Active Substance: CITALOPRAM HYDROBROMIDE
     Dosage: 20 MG, QD
     Route: 048
  7. HYDROCHLOROTHIAZIDE. [Concomitant]
     Active Substance: HYDROCHLOROTHIAZIDE
     Dosage: 25 MG, QD
     Route: 048
  8. MEDROL [Concomitant]
     Active Substance: METHYLPREDNISOLONE
     Dosage: 4 MG, UNK
     Route: 048
  9. ZYFLO [Concomitant]
     Active Substance: ZILEUTON
     Dosage: 600 MG, BID
     Route: 048
  10. PREDNISON [Suspect]
     Active Substance: PREDNISONE
     Dosage: UNK UKN, UNK
  11. FLONASE [Concomitant]
     Active Substance: FLUTICASONE PROPIONATE
     Dosage: 0.05 MG, QD
     Route: 045
  12. AVELOX [Concomitant]
     Active Substance: MOXIFLOXACIN HYDROCHLORIDE
     Dosage: 400 MG, QD
     Route: 048
  13. VENTOLIN HFA [Concomitant]
     Active Substance: ALBUTEROL SULFATE
     Dosage: UNK UKN, UNK (4 IN 1 DAY)
     Route: 055
  14. XOLAIR [Suspect]
     Active Substance: OMALIZUMAB
     Indication: ASTHMA
     Dosage: 225 MG, BIW
     Route: 058
  15. ADVAIR HFA [Concomitant]
     Active Substance: FLUTICASONE PROPIONATE\SALMETEROL XINAFOATE
     Dosage: UNK UKN, UNK 2 IN 1 DAY

REACTIONS (3)
  - Asthma [Unknown]
  - Middle insomnia [Unknown]
  - Urticaria [Unknown]

NARRATIVE: CASE EVENT DATE: 20121005
